FAERS Safety Report 5456464-8 (Version None)
Quarter: 2007Q3

REPORT INFORMATION
  Report Type: 
  Country: None (occurrence: None)
  Receive Date: 20070918
  Receipt Date: 20070906
  Transmission Date: 20080115
  Serious: Yes (Life-Threatening)
  Sender: FDA-Public Use
  Company Number: US-KINGPHARMUSA00001-K200701058

PATIENT

DRUGS (10)
  1. EPINEPHRINE [Suspect]
     Indication: LOCAL ANAESTHESIA
     Dosage: 5 ML, SINGLE
     Dates: start: 20070613, end: 20070613
  2. LIDOCAINE [Suspect]
     Indication: LOCAL ANAESTHESIA
     Dosage: 5 ML, SINGLE
     Dates: start: 20070613, end: 20070613
  3. RADIOACTIVE MATERIAL [Suspect]
  4. MIDAZOLAM HCL [Concomitant]
     Dates: start: 20070613, end: 20070613
  5. FENTANYL [Concomitant]
     Dates: start: 20070613, end: 20070613
  6. PROPOFOL [Concomitant]
     Dates: start: 20070613, end: 20070613
  7. SEVOFLURANE [Concomitant]
     Dates: start: 20070613, end: 20070613
  8. CEPHALOZOLIN [Concomitant]
     Dates: start: 20070613, end: 20070613
  9. METOCLOPRAMIDE [Concomitant]
     Dates: start: 20070613, end: 20070613
  10. LYMPHAZURIN                        /00168401/ [Concomitant]
     Indication: SCAN LYMPH NODES
     Dates: start: 20070613, end: 20070613

REACTIONS (6)
  - HYPERTENSION [None]
  - INCORRECT ROUTE OF DRUG ADMINISTRATION [None]
  - PARALYSIS [None]
  - RESPIRATORY ARREST [None]
  - RESPIRATORY DEPRESSION [None]
  - TACHYCARDIA [None]
